FAERS Safety Report 4895438-2 (Version None)
Quarter: 2006Q1

REPORT INFORMATION
  Report Type: 
  Country: None (occurrence: None)
  Receive Date: 20060130
  Receipt Date: 20050712
  Transmission Date: 20060701
  Serious: No
  Sender: FDA-Public Use
  Company Number: US-GLAXOSMITHKLINE-A0565921A

PATIENT
  Age: 42 Year
  Sex: Male

DRUGS (6)
  1. EPIVIR [Suspect]
     Indication: HIV INFECTION
     Dosage: 1TAB PER DAY
     Route: 048
     Dates: start: 20040201
  2. EPZICOM [Suspect]
     Indication: HIV INFECTION
     Dosage: 1TAB PER DAY
     Route: 048
     Dates: start: 20050501
  3. ZIAGEN [Suspect]
     Indication: HIV INFECTION
     Dosage: 2TAB TWICE PER DAY
     Route: 048
     Dates: start: 20040201
  4. REYATAZ [Concomitant]
  5. NORVIR [Concomitant]
  6. ITRACONAZOLE [Concomitant]

REACTIONS (6)
  - ACNE [None]
  - HEADACHE [None]
  - NAUSEA [None]
  - OCULAR HYPERAEMIA [None]
  - PRURITUS [None]
  - RASH [None]
